FAERS Safety Report 6632675-0 (Version None)
Quarter: 2010Q1

REPORT INFORMATION
  Report Type: 
  Country: None (occurrence: None)
  Receive Date: 20100312
  Receipt Date: 20100301
  Transmission Date: 20100710
  Serious: Yes (Hospitalization)
  Sender: FDA-Public Use
  Company Number: FR-ELI_LILLY_AND_COMPANY-FR201003000120

PATIENT
  Sex: Female

DRUGS (9)
  1. BYETTA [Suspect]
     Indication: TYPE 2 DIABETES MELLITUS
     Dosage: 5 UG, UNKNOWN
     Route: 058
     Dates: start: 20090918, end: 20091019
  2. BYETTA [Suspect]
     Dosage: 10 UG, UNKNOWN
     Route: 058
     Dates: start: 20091019, end: 20100120
  3. ATHYMIL [Concomitant]
     Dosage: 10 MG, DAILY (1/D)
     Route: 048
     Dates: start: 20090810, end: 20100121
  4. CO-TAREG [Concomitant]
     Dosage: 2 MG, UNK
     Dates: start: 20080301
  5. PRAVADUAL [Concomitant]
     Dosage: UNK, UNKNOWN
     Dates: start: 20070801
  6. LASILIX [Concomitant]
     Dosage: 40 MG, DAILY (1/D)
  7. DRIPTANE [Concomitant]
     Dosage: 2 D/F, UNKNOWN
     Dates: start: 20060101
  8. METFORMIN HCL [Concomitant]
     Dosage: UNK, UNKNOWN
     Dates: end: 20071001
  9. LEVEMIR [Concomitant]
     Dates: start: 20070101

REACTIONS (2)
  - AGRANULOCYTOSIS [None]
  - DIABETES MELLITUS INADEQUATE CONTROL [None]
